FAERS Safety Report 7311241-8 (Version None)
Quarter: 2011Q1

REPORT INFORMATION
  Report Type: 
  Country: None (occurrence: None)
  Receive Date: 20110224
  Receipt Date: 20110125
  Transmission Date: 20110831
  Serious: No
  Sender: FDA-Public Use
  Company Number: JP-ROCHE-761591

PATIENT
  Sex: Female

DRUGS (1)
  1. TAMIFLU [Suspect]
     Dosage: DOSE FORM: PERORAL AGENT,DOSAGE IS UNCERTAIN.
     Route: 048

REACTIONS (1)
  - DRUG EXPOSURE VIA BREAST MILK [None]
